FAERS Safety Report 21721993 (Version 1)
Quarter: 2022Q4

REPORT INFORMATION
  Report Type: Spontaneous
  Country: US (occurrence: US)
  Receive Date: 20221213
  Receipt Date: 20221213
  Transmission Date: 20230113
  Serious: Yes (Death)
  Sender: FDA-Public Use
  Company Number: US-EPIZYME, INC-2022USEPIZYME0781

PATIENT

DRUGS (1)
  1. TAZVERIK [Suspect]
     Active Substance: TAZEMETOSTAT HYDROBROMIDE
     Indication: Epithelioid sarcoma metastatic
     Dosage: 800 MG, BID
     Route: 048
     Dates: start: 202211

REACTIONS (1)
  - Death [Fatal]

NARRATIVE: CASE EVENT DATE: 20221124
